FAERS Safety Report 6021636-0 (Version None)
Quarter: 2008Q4

REPORT INFORMATION
  Report Type: 
  Country: None (occurrence: None)
  Receive Date: 20081229
  Receipt Date: 20081219
  Transmission Date: 20090506
  Serious: Yes (Hospitalization)
  Sender: FDA-Public Use
  Company Number: US-PFIZER INC-2008086970

PATIENT
  Sex: Male
  Weight: 102.95 kg

DRUGS (8)
  1. SILDENAFIL CITRATE [Suspect]
     Indication: PULMONARY HYPERTENSION
     Dosage: FREQUENCY: TID; INTERVAL: DAILY
     Route: 048
     Dates: start: 20080708
  2. CRESTOR [Concomitant]
     Route: 048
     Dates: start: 20080301
  3. ALPRAZOLAM [Concomitant]
     Route: 048
     Dates: start: 20080301
  4. TORSEMIDE [Concomitant]
     Route: 048
     Dates: start: 20080301
  5. DIOVAN HCT [Concomitant]
     Route: 048
     Dates: start: 19930101
  6. LEVOTHYROXINE [Concomitant]
     Route: 048
     Dates: start: 20080301
  7. SPIRONOLACTONE [Concomitant]
     Route: 048
     Dates: start: 20080424
  8. DILANTIN [Concomitant]
     Route: 048
     Dates: start: 20000101

REACTIONS (2)
  - PULMONARY HYPERTENSION [None]
  - SUPRAVENTRICULAR TACHYCARDIA [None]
